FAERS Safety Report 5618873-3 (Version None)
Quarter: 2008Q1

REPORT INFORMATION
  Report Type: 
  Country: None (occurrence: None)
  Receive Date: 20080207
  Receipt Date: 20080130
  Transmission Date: 20080703
  Serious: Yes (Hospitalization)
  Sender: FDA-Public Use
  Company Number: IT-PFIZER INC-2007065425

PATIENT
  Sex: Female

DRUGS (3)
  1. BASSADO [Suspect]
     Indication: BRUCELLOSIS
     Route: 048
     Dates: start: 20070802, end: 20070802
  2. ZANTAC [Suspect]
     Indication: ABDOMINAL PAIN UPPER
     Route: 048
     Dates: start: 20070802, end: 20070802
  3. RIFAMPICIN [Concomitant]
     Route: 048

REACTIONS (3)
  - ERYTHEMA [None]
  - HEADACHE [None]
  - PRURITUS [None]
